FAERS Safety Report 9694027 (Version 2)
Quarter: 2013Q4

REPORT INFORMATION
  Report Type: Spontaneous
  Country: PT (occurrence: FR)
  Receive Date: 20131118
  Receipt Date: 20131118
  Transmission Date: 20140711
  Serious: Yes (Other)
  Sender: FDA-Public Use
  Company Number: 2013SP002906

PATIENT
  Age: 83 Year
  Sex: Male
  Weight: 75 kg

DRUGS (2)
  1. ZEBINIX (ESLICARBAZEPINE ACETATE) [Suspect]
     Indication: EPILEPSY
     Route: 048
     Dates: start: 20130530, end: 20130715
  2. KEPPRA [Concomitant]
     Indication: EPILEPSY
     Dates: start: 20081008

REACTIONS (2)
  - Dermatitis allergic [Recovering/Resolving]
  - Urticaria [Recovered/Resolved]
